FAERS Safety Report 16543272 (Version 3)
Quarter: 2019Q3

REPORT INFORMATION
  Report Type: Spontaneous
  Country: US (occurrence: US)
  Receive Date: 20190709
  Receipt Date: 20190910
  Transmission Date: 20191004
  Serious: Yes (Other)
  Sender: FDA-Public Use
  Company Number: US-GLAXOSMITHKLINE-US2019GSK121271

PATIENT
  Sex: Female

DRUGS (1)
  1. PREVACID [Suspect]
     Active Substance: LANSOPRAZOLE
     Indication: GASTROOESOPHAGEAL REFLUX DISEASE
     Dosage: 15 MG, QD
     Route: 065

REACTIONS (17)
  - Acute kidney injury [Not Recovered/Not Resolved]
  - Renal impairment [Unknown]
  - Renal disorder [Unknown]
  - Nephropathy [Unknown]
  - Renal failure [Unknown]
  - Urinary retention [Unknown]
  - Nephrolithiasis [Unknown]
  - Dysuria [Unknown]
  - Urinary incontinence [Unknown]
  - Haematuria [Unknown]
  - Chronic kidney disease [Unknown]
  - Renal pain [Unknown]
  - Renal lipomatosis [Unknown]
  - Renal injury [Unknown]
  - Pollakiuria [Unknown]
  - Hypercalciuria [Unknown]
  - Proteinuria [Unknown]
